FAERS Safety Report 7621481-6 (Version None)
Quarter: 2011Q3

REPORT INFORMATION
  Report Type: 
  Country: None (occurrence: None)
  Receive Date: 20110719
  Receipt Date: 20110713
  Transmission Date: 20111222
  Serious: No
  Sender: FDA-Public Use
  Company Number: US-B.I. PHARMACEUTICALS,INC./RIDGEFIELD-2011-BP-14683BP

PATIENT
  Sex: Male

DRUGS (10)
  1. LISINOPRIL [Concomitant]
     Indication: ATRIAL FIBRILLATION
     Dosage: 10 MG
  2. ADVAIR DISKUS 100/50 [Concomitant]
     Indication: MULTIPLE ALLERGIES
  3. ALBUTEROL SULFATE AUTOHALER [Concomitant]
     Indication: MULTIPLE ALLERGIES
  4. FINASTERIDE [Concomitant]
     Indication: PROSTATOMEGALY
  5. PRADAXA [Suspect]
     Indication: ATRIAL FIBRILLATION
     Dosage: 300 MG
     Route: 048
     Dates: start: 20110330, end: 20110609
  6. ALBUTEROL SULFATE AUTOHALER [Concomitant]
     Indication: CHRONIC OBSTRUCTIVE PULMONARY DISEASE
  7. ZYRTEC [Concomitant]
     Indication: MULTIPLE ALLERGIES
  8. ADVAIR DISKUS 100/50 [Concomitant]
     Indication: CHRONIC OBSTRUCTIVE PULMONARY DISEASE
  9. COREG [Concomitant]
     Indication: ATRIAL FIBRILLATION
     Dosage: 25 MG
  10. CELEBREX [Concomitant]
     Indication: BACK PAIN

REACTIONS (3)
  - BALANCE DISORDER [None]
  - DYSPNOEA [None]
  - FALL [None]
